FAERS Safety Report 9183113 (Version 1)
Quarter: 2013Q1

REPORT INFORMATION
  Report Type: Spontaneous
  Country: US (occurrence: US)
  Receive Date: 20130322
  Receipt Date: 20130322
  Transmission Date: 20140127
  Serious: Yes (Other)
  Sender: FDA-Public Use
  Company Number: US-BRISTOL-MYERS SQUIBB COMPANY-16906265

PATIENT
  Age: 82 Year
  Sex: Male

DRUGS (7)
  1. ERBITUX SOLN FOR INF [Suspect]
     Dates: start: 20120824, end: 20120824
  2. METOPROLOL [Concomitant]
  3. WARFARIN [Concomitant]
  4. DEXAMETHASONE [Concomitant]
     Indication: PREMEDICATION
     Dosage: ALSO TAKEN AS 4MG TABLETS
     Route: 042
  5. BENADRYL [Concomitant]
     Indication: PREMEDICATION
     Dosage: PREVIOUSLY 50MG
     Route: 042
  6. SOLU-CORTEF [Concomitant]
     Indication: PREMEDICATION
     Route: 042
  7. ALBUTEROL INHALER [Concomitant]
     Indication: PREMEDICATION
     Dosage: 1 DF: 2 PUFFS
     Route: 055

REACTIONS (1)
  - Hypersensitivity [Recovered/Resolved]
